FAERS Safety Report 7114660-8 (Version None)
Quarter: 2010Q4

REPORT INFORMATION
  Report Type: 
  Country: None (occurrence: None)
  Receive Date: 20101122
  Receipt Date: 20101112
  Transmission Date: 20110411
  Serious: Yes (Hospitalization)
  Sender: FDA-Public Use
  Company Number: US-BIOGENIDEC-2010BI039740

PATIENT
  Age: 39 Year
  Sex: Female
  Weight: 76 kg

DRUGS (6)
  1. TYSABRI [Suspect]
     Indication: MULTIPLE SCLEROSIS
     Route: 042
     Dates: start: 20090323
  2. CHINESE HERBS [Concomitant]
     Indication: ROUTINE HEALTH MAINTENANCE
     Route: 048
  3. ATIVAN [Concomitant]
     Indication: NAUSEA
     Route: 048
  4. ATIVAN [Concomitant]
     Indication: ANXIETY
     Route: 048
  5. ATIVAN [Concomitant]
     Route: 048
  6. ATIVAN [Concomitant]
     Route: 048

REACTIONS (1)
  - T-CELL LYMPHOMA [None]
